FAERS Safety Report 16892243 (Version 1)
Quarter: 2019Q4

REPORT INFORMATION
  Report Type: Spontaneous
  Country: GB (occurrence: GB)
  Receive Date: 20191007
  Receipt Date: 20191007
  Transmission Date: 20200122
  Serious: Yes (Other)
  Sender: FDA-Public Use
  Company Number: GB-MYLANLABS-2019M1092336

PATIENT
  Age: 84 Year
  Sex: Male
  Weight: 74 kg

DRUGS (11)
  1. RANITIDINE. [Concomitant]
     Active Substance: RANITIDINE
     Dosage: 2 DOSAGE FORM, QD
     Dates: start: 20190415
  2. FELODIPINE. [Concomitant]
     Active Substance: FELODIPINE
     Dosage: 1 DOSAGE FORM, QD
     Dates: start: 20181106, end: 20190418
  3. SIMVASTATIN. [Concomitant]
     Active Substance: SIMVASTATIN
     Dosage: NIGHT
     Dates: start: 20181106
  4. CHLORPHENAMINE [Concomitant]
     Active Substance: CHLORPHENIRAMINE MALEATE
     Dosage: EVERY 4-6 HRS
     Dates: start: 20190415, end: 20190422
  5. LANSOPRAZOLE. [Suspect]
     Active Substance: LANSOPRAZOLE
     Indication: PRODUCT USED FOR UNKNOWN INDICATION
     Dosage: 15 MILLIGRAM
     Dates: start: 20190415
  6. DICLOFENAC SODIUM. [Concomitant]
     Active Substance: DICLOFENAC SODIUM
     Dosage: 2 DOSAGE FORM, QD
     Dates: start: 20190226, end: 20190226
  7. FLUOROURACIL. [Concomitant]
     Active Substance: FLUOROURACIL
     Dosage: APPLY AS DIRECTED ONCE OR TWICE A DAY
     Dates: start: 20190226, end: 20190326
  8. PREDNISOLONE. [Concomitant]
     Active Substance: PREDNISOLONE
     Dosage: 8 DOSAGE FORM, QD
     Dates: start: 20190415, end: 20190420
  9. CANDESARTAN. [Concomitant]
     Active Substance: CANDESARTAN
     Dosage: 1 DOSAGE FORM, QD
     Dates: start: 20181106
  10. INDAPAMIDE. [Concomitant]
     Active Substance: INDAPAMIDE
     Dosage: MORNING
     Dates: start: 20181106
  11. PARACETAMOL [Concomitant]
     Active Substance: ACETAMINOPHEN
     Dosage: 2 UP TO FOUR TIMES A DAY
     Dates: start: 20181106

REACTIONS (1)
  - Lip swelling [Recovered/Resolved]

NARRATIVE: CASE EVENT DATE: 20190416
